FAERS Safety Report 5376399-9 (Version None)
Quarter: 2007Q3

REPORT INFORMATION
  Report Type: 
  Country: None (occurrence: None)
  Receive Date: 20070702
  Receipt Date: 20070621
  Transmission Date: 20080115
  Serious: Yes (Hospitalization, Other)
  Sender: FDA-Public Use
  Company Number: JP-PFIZER INC-2007047873

PATIENT
  Sex: Female

DRUGS (9)
  1. LIPITOR [Suspect]
     Indication: HYPERLIPIDAEMIA
     Route: 048
     Dates: start: 20070521, end: 20070604
  2. INSULIN [Concomitant]
  3. INSULIN HUMAN [Concomitant]
  4. MELBIN [Concomitant]
     Route: 048
  5. PANTOSIN [Concomitant]
     Route: 048
  6. MAGNESIUM OXIDE [Concomitant]
     Route: 048
  7. SENNOSIDE A+B [Concomitant]
     Route: 048
  8. TAKEPRON [Concomitant]
     Route: 048
  9. LOCHOL [Concomitant]
     Route: 048

REACTIONS (1)
  - HENOCH-SCHONLEIN PURPURA [None]
